FAERS Safety Report 8838890 (Version 2)
Quarter: 2012Q4

REPORT INFORMATION
  Report Type: 
  Country: US (occurrence: US)
  Receive Date: 20121015
  Receipt Date: 20121218
  Transmission Date: 20130627
  Serious: No
  Sender: FDA-Public Use
  Company Number: US-009507513-1210USA002235

PATIENT
  Sex: Female

DRUGS (3)
  1. PEG-INTRON [Suspect]
     Indication: HEPATITIS C
     Dosage: UNK
     Dates: start: 20120904, end: 20121212
  2. REBETOL [Suspect]
     Indication: HEPATITIS C
     Dosage: 2 DF, qd
     Dates: start: 2012, end: 20121212
  3. REBETOL [Suspect]
     Dosage: 5 DF, qd
     Dates: start: 20120904

REACTIONS (8)
  - Drug ineffective [Unknown]
  - Irritability [Unknown]
  - Insomnia [Unknown]
  - Headache [Unknown]
  - Weight decreased [Unknown]
  - Decreased appetite [Unknown]
  - Fatigue [Unknown]
  - Haemoglobin decreased [Unknown]
